FAERS Safety Report 11829961 (Version 1)
Quarter: 2015Q4

REPORT INFORMATION
  Report Type: Spontaneous
  Country: US (occurrence: US)
  Receive Date: 20151213
  Receipt Date: 20151213
  Transmission Date: 20160305
  Serious: No
  Sender: FDA-Public Use
  Company Number: US-ASTRAZENECA-2015SF22162

PATIENT
  Age: 17817 Day
  Sex: Male
  Weight: 102.1 kg

DRUGS (6)
  1. PRILOSEC [Suspect]
     Active Substance: OMEPRAZOLE MAGNESIUM
     Route: 048
  2. ASPIRIN. [Concomitant]
     Active Substance: ASPIRIN
     Route: 048
  3. NEXIUM [Suspect]
     Active Substance: ESOMEPRAZOLE MAGNESIUM
     Indication: DYSPEPSIA
     Route: 048
  4. NEXIUM [Suspect]
     Active Substance: ESOMEPRAZOLE MAGNESIUM
     Indication: GASTROOESOPHAGEAL REFLUX DISEASE
     Route: 048
  5. PREVACID [Concomitant]
     Active Substance: LANSOPRAZOLE
  6. ZANTAC [Concomitant]
     Active Substance: RANITIDINE HYDROCHLORIDE

REACTIONS (8)
  - Off label use [Unknown]
  - Muscle disorder [Unknown]
  - Diarrhoea [Unknown]
  - Headache [Unknown]
  - Urinary tract disorder [Unknown]
  - Overweight [Unknown]
  - Barrett^s oesophagus [Unknown]
  - Body height decreased [Unknown]

NARRATIVE: CASE EVENT DATE: 20030701
